FAERS Safety Report 17354748 (Version 2)
Quarter: 2020Q2

REPORT INFORMATION
  Report Type: Report from Study
  Country: US (occurrence: US)
  Receive Date: 20200131
  Receipt Date: 20200402
  Transmission Date: 20200713
  Serious: Yes (Other)
  Sender: FDA-Public Use
  Company Number: NVSC2020US022806

PATIENT
  Age: 51 Year
  Sex: Female

DRUGS (2)
  1. MAYZENT [Suspect]
     Active Substance: SIPONIMOD
     Dosage: 2 MG
     Route: 048
     Dates: start: 20191024
  2. MAYZENT [Suspect]
     Active Substance: SIPONIMOD
     Indication: PRODUCT USED FOR UNKNOWN INDICATION
     Dosage: 2 MG, QD
     Route: 048
     Dates: start: 20191025

REACTIONS (11)
  - Polyp [Unknown]
  - Gastrooesophageal reflux disease [Unknown]
  - Influenza like illness [Unknown]
  - Cough [Unknown]
  - Diarrhoea [Unknown]
  - Headache [Unknown]
  - Hyperhidrosis [Unknown]
  - Pyrexia [Unknown]
  - Gastritis erosive [Unknown]
  - Pain [Unknown]
  - Chills [Unknown]

NARRATIVE: CASE EVENT DATE: 20200317
